FAERS Safety Report 7029995-7 (Version None)
Quarter: 2010Q4

REPORT INFORMATION
  Report Type: 
  Country: None (occurrence: None)
  Receive Date: 20101006
  Receipt Date: 20100922
  Transmission Date: 20110411
  Serious: Yes (Hospitalization)
  Sender: FDA-Public Use
  Company Number: PHHY2010BR63437

PATIENT
  Sex: Female
  Weight: 95 kg

DRUGS (1)
  1. DIOVAN AMLO [Suspect]
     Indication: HYPERTENSION
     Dosage: ONE TABLET (160/5 MG) OF EACH ACTIVE INGREDIENT A DAY, IN THE MORNING
     Route: 048

REACTIONS (2)
  - CHOLECYSTECTOMY [None]
  - OBESITY SURGERY [None]
